FAERS Safety Report 16089260 (Version 1)
Quarter: 2019Q1

REPORT INFORMATION
  Report Type: Spontaneous
  Country: US (occurrence: US)
  Receive Date: 20190319
  Receipt Date: 20190319
  Transmission Date: 20190418
  Serious: Yes (Hospitalization)
  Sender: FDA-Public Use
  Company Number: US-PFIZER INC-2018492338

PATIENT
  Age: 82 Year
  Sex: Female
  Weight: 44.45 kg

DRUGS (1)
  1. IBRANCE [Suspect]
     Active Substance: PALBOCICLIB
     Indication: BREAST CANCER METASTATIC
     Dosage: 125 MG, CYCLIC (21 DAYS, THEN OFF FOR 7 DAYS)
     Route: 048
     Dates: start: 201708, end: 20190306

REACTIONS (7)
  - Neoplasm progression [Not Recovered/Not Resolved]
  - Malaise [Not Recovered/Not Resolved]
  - Fall [Unknown]
  - Dizziness [Recovering/Resolving]
  - White blood cell count decreased [Unknown]
  - Vomiting [Unknown]
  - Abdominal distension [Not Recovered/Not Resolved]

NARRATIVE: CASE EVENT DATE: 2019
